FAERS Safety Report 17143236 (Version 1)
Quarter: 2019Q4

REPORT INFORMATION
  Report Type: Spontaneous
  Country: US (occurrence: US)
  Receive Date: 20191211
  Receipt Date: 20191211
  Transmission Date: 20200122
  Serious: Yes (Other)
  Sender: FDA-Public Use
  Company Number: US-AMERICAN REGENT INC-20182311

PATIENT
  Age: 57 Year
  Sex: Female
  Weight: 52.16 kg

DRUGS (1)
  1. VENOFER [Suspect]
     Active Substance: IRON SUCROSE
     Dosage: 100 MG/5ML 1 DAYS
     Route: 042
     Dates: start: 20181128, end: 20181128

REACTIONS (9)
  - Syncope [Recovered/Resolved]
  - Heart rate increased [Unknown]
  - Asthenia [Unknown]
  - Fatigue [Unknown]
  - Joint swelling [Not Recovered/Not Resolved]
  - Movement disorder [Recovered/Resolved]
  - Peripheral swelling [Not Recovered/Not Resolved]
  - Arthralgia [Unknown]
  - Malaise [Unknown]

NARRATIVE: CASE EVENT DATE: 20181128
